FAERS Safety Report 7553468-6 (Version None)
Quarter: 2011Q2

REPORT INFORMATION
  Report Type: 
  Country: None (occurrence: None)
  Receive Date: 20110617
  Receipt Date: 20110119
  Transmission Date: 20111010
  Serious: Yes (Hospitalization, Other)
  Sender: FDA-Public Use
  Company Number: US-BAYER-201029591NA

PATIENT
  Age: 18 Year
  Sex: Female
  Weight: 52.154 kg

DRUGS (8)
  1. DROSPIRENONE AND ETHINYL ESTRADIOL [Suspect]
     Indication: DYSMENORRHOEA
  2. SPIRONOLACTONE [Concomitant]
     Dosage: 100 MG, UNK
  3. YAZ [Suspect]
     Indication: DYSMENORRHOEA
  4. HYOSCYAMINE [Concomitant]
     Dosage: UNK UNK, PRN
  5. DROSPIRENONE AND ETHINYL ESTRADIOL [Suspect]
     Indication: CONTRACEPTION
     Dosage: UNK
     Route: 048
     Dates: start: 20090501, end: 20091001
  6. YASMIN [Suspect]
     Indication: CONTRACEPTION
     Dosage: UNK UNK, UNK
     Route: 048
     Dates: start: 20070701, end: 20090401
  7. YASMIN [Suspect]
     Indication: DYSMENORRHOEA
     Dosage: UNK
     Dates: end: 20100108
  8. YAZ [Suspect]
     Indication: CONTRACEPTION
     Dosage: UNK
     Route: 048
     Dates: start: 20080401, end: 20080401

REACTIONS (5)
  - BILIARY DYSKINESIA [None]
  - ABDOMINAL PAIN [None]
  - CHOLECYSTITIS [None]
  - GASTROINTESTINAL DISORDER [None]
  - NAUSEA [None]
